FAERS Safety Report 8867574 (Version 1)
Quarter: 2012Q4

REPORT INFORMATION
  Report Type: 
  Country: US (occurrence: US)
  Receive Date: 20121025
  Receipt Date: 20121025
  Transmission Date: 20130627
  Serious: No
  Sender: FDA-Public Use
  Company Number: US-AMGEN-USASP2012017436

PATIENT
  Weight: 99.77 kg

DRUGS (5)
  1. ENBREL [Suspect]
     Indication: PRODUCT USED FOR UNKNOWN INDICATION
     Dosage: 50 mg, qwk
     Route: 058
  2. MOBIC [Concomitant]
     Dosage: 15 mg, UNK
  3. OMEPRAZOLE [Concomitant]
     Dosage: 20 mg, UNK
  4. PLAQUENIL                          /00072602/ [Concomitant]
     Dosage: 200 mg, UNK
  5. ALEVE [Concomitant]
     Dosage: 220 mg, UNK

REACTIONS (5)
  - Sinus headache [Unknown]
  - Epistaxis [Unknown]
  - Facial pain [Unknown]
  - Gastrointestinal disorder [Unknown]
  - Sinusitis [Unknown]
